FAERS Safety Report 14056156 (Version 1)
Quarter: 2017Q4

REPORT INFORMATION
  Report Type: Spontaneous
  Country: DE (occurrence: DE)
  Receive Date: 20171006
  Receipt Date: 20171006
  Transmission Date: 20180321
  Serious: Yes (Other)
  Sender: FDA-Public Use
  Company Number: DE-TEVA-2012-15619

PATIENT
  Age: 52 Year
  Sex: Female

DRUGS (6)
  1. PRAMIPEXOLE DIHYDROCHLORIDE (UNKNOWN) [Suspect]
     Active Substance: PRAMIPEXOLE DIHYDROCHLORIDE
     Indication: DYSTONIA
     Dosage: .176 MILLIGRAM DAILY;
     Route: 065
  2. PRAMIPEXOLE DIHYDROCHLORIDE (UNKNOWN) [Suspect]
     Active Substance: PRAMIPEXOLE DIHYDROCHLORIDE
     Indication: TORTICOLLIS
  3. PRAMIPEXOLE DIHYDROCHLORIDE (UNKNOWN) [Suspect]
     Active Substance: PRAMIPEXOLE DIHYDROCHLORIDE
     Indication: WRITER^S CRAMP
  4. ROPINIROLE HYDROCHLORIDE (UNKNOWN) [Suspect]
     Active Substance: ROPINIROLE HYDROCHLORIDE
     Indication: WRITER^S CRAMP
     Dosage: .5 MILLIGRAM DAILY;
     Route: 065
  5. ROPINIROLE HYDROCHLORIDE (UNKNOWN) [Suspect]
     Active Substance: ROPINIROLE HYDROCHLORIDE
     Indication: DYSTONIA
  6. ROPINIROLE HYDROCHLORIDE (UNKNOWN) [Suspect]
     Active Substance: ROPINIROLE HYDROCHLORIDE
     Indication: TORTICOLLIS

REACTIONS (3)
  - Diarrhoea [Recovered/Resolved]
  - Female orgasmic disorder [Recovered/Resolved]
  - Orthostatic hypotension [Recovered/Resolved]
